FAERS Safety Report 23440369 (Version 1)
Quarter: 2024Q1

REPORT INFORMATION
  Report Type: Report from Study
  Country: CO (occurrence: CO)
  Receive Date: 20240124
  Receipt Date: 20240124
  Transmission Date: 20240410
  Serious: Yes (Other)
  Sender: FDA-Public Use
  Company Number: CO-ABBVIE-5601752

PATIENT
  Sex: Female
  Weight: 71 kg

DRUGS (2)
  1. BOTOX [Suspect]
     Active Substance: ONABOTULINUMTOXINA
     Indication: Blepharospasm
     Dosage: TIME INTERVAL: AS NECESSARY: FORM STRENGTH: 50 UNIT
     Route: 065
     Dates: start: 20230131, end: 20230131
  2. SYSTANE (HYPROMELLOSE 2910 (4000 MPA.S)) [Concomitant]
     Active Substance: HYPROMELLOSE 2910 (4000 MPA.S)
     Indication: Cataract
     Dosage: 1 DROP IN EACH EYE, POLYETHYLENE GLYCOL 400/PROPYLENE GLYCOL

REACTIONS (2)
  - Surgery [Unknown]
  - Cataract [Recovering/Resolving]

NARRATIVE: CASE EVENT DATE: 20230101
